FAERS Safety Report 10947719 (Version 1)
Quarter: 2015Q1

REPORT INFORMATION
  Report Type: Spontaneous
  Country: US (occurrence: US)
  Receive Date: 20150324
  Receipt Date: 20150324
  Transmission Date: 20150721
  Serious: No
  Sender: FDA-Public Use
  Company Number: US-ELI_LILLY_AND_COMPANY-US201503004002

PATIENT
  Sex: Female

DRUGS (10)
  1. METOLAZONE. [Concomitant]
     Active Substance: METOLAZONE
     Dosage: UNK, WEEKLY (1/W)
  2. OMEPRAZOLE. [Concomitant]
     Active Substance: OMEPRAZOLE
  3. METOPROLOL [Concomitant]
     Active Substance: METOPROLOL
     Dosage: UNK, BID
  4. FUROSEMIDE. [Concomitant]
     Active Substance: FUROSEMIDE
  5. ASPIRIN                            /00002701/ [Concomitant]
     Active Substance: ASPIRIN
     Dosage: UNK
  6. CRANBERRY                          /01512301/ [Concomitant]
  7. FORTEO [Suspect]
     Active Substance: TERIPARATIDE
     Indication: COMPRESSION FRACTURE
     Dosage: UNK, QD
     Route: 065
     Dates: start: 20150309
  8. LORAZEPAM. [Concomitant]
     Active Substance: LORAZEPAM
     Dosage: UNK, QD
  9. KLOR-CON [Concomitant]
     Active Substance: POTASSIUM CHLORIDE
     Dosage: UNK, TID
  10. COLECALCIFEROL [Concomitant]
     Active Substance: CHOLECALCIFEROL

REACTIONS (10)
  - Asthenia [Unknown]
  - Anxiety [Unknown]
  - Frustration [Unknown]
  - Confusional state [Unknown]
  - Disturbance in attention [Unknown]
  - Tremor [Unknown]
  - Nausea [Unknown]
  - Feeling abnormal [Unknown]
  - Hypersomnia [Unknown]
  - Off label use [Unknown]
